FAERS Safety Report 10194437 (Version 1)
Quarter: 2014Q2

REPORT INFORMATION
  Report Type: Report from Study
  Country: US (occurrence: US)
  Receive Date: 20140526
  Receipt Date: 20140526
  Transmission Date: 20141212
  Serious: Yes (Other)
  Sender: FDA-Public Use
  Company Number: US-BIOGENIDEC-2014BI049321

PATIENT
  Age: 45 Year
  Sex: Male
  Weight: 73 kg

DRUGS (12)
  1. AVONEX [Suspect]
     Indication: MULTIPLE SCLEROSIS
     Route: 030
     Dates: start: 20070216
  2. ACTONEL [Concomitant]
     Route: 048
  3. ASPIRIN [Concomitant]
     Route: 048
  4. BETASERON [Concomitant]
     Route: 058
  5. CHANTIX [Concomitant]
     Route: 048
  6. DEPAKOTE [Concomitant]
     Route: 048
  7. MIDODRINE [Concomitant]
     Route: 048
  8. OMEPRAZOLE [Concomitant]
     Route: 048
  9. PERCOCET [Concomitant]
     Route: 048
  10. SIMVASTATIN [Concomitant]
     Route: 048
  11. ZOLPIDEM [Concomitant]
     Route: 048
  12. MEDICAL MARIJUANA [Concomitant]

REACTIONS (2)
  - Pneumothorax traumatic [Unknown]
  - Idiopathic generalised epilepsy [Unknown]
